FAERS Safety Report 8511120 (Version 4)
Quarter: 2012Q4

REPORT INFORMATION
  Report Type: 
  Country: US (occurrence: US)
  Receive Date: 20120413
  Receipt Date: 20121120
  Transmission Date: 20130627
  Serious: Yes (Other)
  Sender: FDA-Public Use
  Company Number: US-PFIZER INC-2012090679

PATIENT
  Age: 70 Year
  Sex: Female
  Weight: 122.45 kg

DRUGS (18)
  1. CELEBREX [Suspect]
     Indication: OSTEOARTHRITIS
     Dosage: 200 mg, 2x/day
     Route: 048
  2. CELEBREX [Suspect]
     Dosage: 200 mg, daily
     Route: 048
     Dates: end: 201101
  3. CELEBREX [Suspect]
     Dosage: 200 mg, as needed (200 mg, PRN)
     Route: 048
     Dates: end: 20110209
  4. CELEBREX [Suspect]
     Dosage: 200 mg, 1x/day
     Route: 048
  5. IBUPROFEN [Suspect]
     Indication: OSTEOARTHRITIS
     Dosage: UNK
  6. MELOXICAM [Suspect]
     Indication: OSTEOARTHRITIS
     Dosage: UNK
     Dates: start: 201101, end: 201110
  7. ATENOLOL [Concomitant]
     Indication: BLOOD PRESSURE HIGH
     Dosage: 50 mg daily
  8. LOSARTAN [Concomitant]
     Indication: BLOOD PRESSURE HIGH
     Dosage: 100 mg, daily
  9. HYDROCHLOROTHIAZIDE [Concomitant]
     Indication: BLOOD PRESSURE HIGH
     Dosage: 25 mg, daily
  10. SYNTHROID [Concomitant]
     Indication: THYROID FUNCTION DECREASED
     Dosage: 0.088 mg, daily
  11. ASPIRIN [Concomitant]
     Dosage: 81 mg, daily
  12. ABC PLUS SENIOR [Concomitant]
     Indication: EYE DISORDER
     Dosage: UNK, daily
  13. CALCIUM WITH VITAMIN D [Concomitant]
     Dosage: 1200 mg /1000 mg, 2x/day
  14. OMEGA 3 [Concomitant]
     Dosage: 1200 mg, daily
  15. GLUCOSAMINE SULFATE [Concomitant]
     Indication: JOINT DISORDER
     Dosage: 1000 mg, 2x/day
  16. MEGA B-50 [Concomitant]
     Dosage: UNK, daily
  17. ACETAMINOPHEN [Concomitant]
     Dosage: UNK
  18. LEVOXYL [Concomitant]
     Indication: THYROID ACTIVITY DECREASED
     Dosage: 0.088 mg, 1x/day

REACTIONS (12)
  - Renal impairment [Recovered/Resolved]
  - Uterine disorder [Unknown]
  - Cataract [Unknown]
  - Pain [Not Recovered/Not Resolved]
  - Limb discomfort [Not Recovered/Not Resolved]
  - Musculoskeletal stiffness [Not Recovered/Not Resolved]
  - Pain [Recovering/Resolving]
  - Musculoskeletal discomfort [Recovering/Resolving]
  - Bursitis [Unknown]
  - Blood cholesterol increased [Unknown]
  - Pain in extremity [Not Recovered/Not Resolved]
  - Neuropathy peripheral [Unknown]
